FAERS Safety Report 10207515 (Version 1)
Quarter: 2014Q2

REPORT INFORMATION
  Report Type: Spontaneous
  Country: US (occurrence: US)
  Receive Date: 20140530
  Receipt Date: 20140530
  Transmission Date: 20141212
  Serious: No
  Sender: FDA-Public Use
  Company Number: US-GLAXOSMITHKLINE-A1046481A

PATIENT
  Sex: Male

DRUGS (7)
  1. VENTOLIN [Suspect]
     Indication: ASTHMA
     Dosage: 1PUFF AS REQUIRED
     Route: 055
     Dates: start: 1976
  2. ALPRAZOLAM [Concomitant]
  3. FLONASE [Concomitant]
  4. SIMVASTATIN [Concomitant]
  5. CITRUCEL [Concomitant]
  6. UNSPECIFIED MEDICATION [Concomitant]
     Indication: SLEEP APNOEA SYNDROME
  7. ALLEGRA D [Concomitant]

REACTIONS (7)
  - Hypopnoea [Not Recovered/Not Resolved]
  - Dyspnoea [Not Recovered/Not Resolved]
  - Sinusitis [Not Recovered/Not Resolved]
  - Bronchitis [Not Recovered/Not Resolved]
  - Sputum retention [Not Recovered/Not Resolved]
  - Drug ineffective [Unknown]
  - Product quality issue [Unknown]
